FAERS Safety Report 16797497 (Version 3)
Quarter: 2019Q4

REPORT INFORMATION
  Report Type: Report from Study
  Country: None (occurrence: CA)
  Receive Date: 20190912
  Receipt Date: 20191009
  Transmission Date: 20200122
  Serious: Yes (Other)
  Sender: FDA-Public Use
  Company Number: CA-ABBVIE-19K-028-2920851-00

PATIENT
  Sex: Female

DRUGS (1)
  1. LUPRON DEPOT [Suspect]
     Active Substance: LEUPROLIDE ACETATE
     Indication: ENDOMETRIOSIS
     Route: 030
     Dates: start: 201904

REACTIONS (4)
  - Drug ineffective [Unknown]
  - Menorrhagia [Unknown]
  - Uterine leiomyoma [Unknown]
  - Anaemia [Unknown]

NARRATIVE: CASE EVENT DATE: 2019
